FAERS Safety Report 10396748 (Version 1)
Quarter: 2014Q3

REPORT INFORMATION
  Report Type: Spontaneous
  Country: GB (occurrence: GB)
  Receive Date: 20140820
  Receipt Date: 20140820
  Transmission Date: 20150326
  Serious: Yes (Other)
  Sender: FDA-Public Use
  Company Number: PHHY2014GB099311

PATIENT
  Age: 71 Year
  Sex: Male
  Weight: 82.75 kg

DRUGS (9)
  1. RAMIPRIL. [Suspect]
     Active Substance: RAMIPRIL
     Dosage: UNK
     Dates: start: 20140612, end: 20140710
  2. AMLODIPINE [Concomitant]
     Active Substance: AMLODIPINE BESYLATE
     Dates: start: 20140310
  3. TERBINAFINE [Concomitant]
     Active Substance: TERBINAFINE
     Dates: start: 20140516, end: 20140531
  4. INDAPAMIDE. [Concomitant]
     Active Substance: INDAPAMIDE
     Dates: start: 20140801
  5. ATORVASTATIN [Concomitant]
     Active Substance: ATORVASTATIN
     Dates: start: 20140310
  6. SOLIFENACIN [Concomitant]
     Active Substance: SOLIFENACIN
     Dates: start: 20140310, end: 20140509
  7. TERBINAFINE [Concomitant]
     Active Substance: TERBINAFINE
     Dates: start: 20140710, end: 20140725
  8. RAMIPRIL. [Suspect]
     Active Substance: RAMIPRIL
     Dates: start: 20140801
  9. SOLIFENACIN [Concomitant]
     Active Substance: SOLIFENACIN
     Dates: start: 20140801

REACTIONS (9)
  - Nightmare [Unknown]
  - Diarrhoea [Unknown]
  - Dizziness [Recovered/Resolved]
  - Nasal congestion [Unknown]
  - Vision blurred [Unknown]
  - Vertigo [Unknown]
  - Oral mucosal blistering [Unknown]
  - Myalgia [Unknown]
  - Depressed mood [Unknown]

NARRATIVE: CASE EVENT DATE: 20140801
